FAERS Safety Report 7513821-3 (Version None)
Quarter: 2011Q2

REPORT INFORMATION
  Report Type: 
  Country: None (occurrence: None)
  Receive Date: 20110531
  Receipt Date: 20110519
  Transmission Date: 20111010
  Serious: Yes (Other)
  Sender: FDA-Public Use
  Company Number: RO-UCBSA-033425

PATIENT
  Sex: Female
  Weight: 23 kg

DRUGS (3)
  1. DEPAKENE [Concomitant]
     Route: 048
     Dates: start: 20110101
  2. KEPPRA [Suspect]
     Indication: EPILEPSY
     Route: 048
     Dates: start: 20110221, end: 20110308
  3. DEPAKENE [Concomitant]
     Indication: EPILEPSY
     Route: 048
     Dates: start: 20100827

REACTIONS (1)
  - SCARLET FEVER [None]
